FAERS Safety Report 9972072 (Version 1)
Quarter: 2014Q1

REPORT INFORMATION
  Report Type: Spontaneous
  Country: US (occurrence: US)
  Receive Date: 20140306
  Receipt Date: 20140306
  Transmission Date: 20141002
  Serious: No
  Sender: FDA-Public Use
  Company Number: US-ABBVIE-13P-163-1148449-00

PATIENT
  Age: 59 Year
  Sex: Female
  Weight: 118.04 kg

DRUGS (2)
  1. HUMIRA [Suspect]
     Indication: PSORIASIS
     Route: 058
     Dates: start: 20100420
  2. HUMIRA [Suspect]
     Route: 058
     Dates: end: 20130906

REACTIONS (2)
  - Herpes zoster [Recovering/Resolving]
  - Blood triglycerides increased [Not Recovered/Not Resolved]
